FAERS Safety Report 15189869 (Version 1)
Quarter: 2018Q3

REPORT INFORMATION
  Report Type: Report from Study
  Country: US (occurrence: US)
  Receive Date: 20180724
  Receipt Date: 20180724
  Transmission Date: 20181010
  Serious: Yes (Hospitalization)
  Sender: FDA-Public Use
  Company Number: US-SA-2018SA076332

PATIENT
  Age: 71 Year
  Sex: Female
  Weight: 59.1 kg

DRUGS (21)
  1. BLINDED ALIROCUMAB [Suspect]
     Active Substance: ALIROCUMAB
     Indication: HYPERCHOLESTEROLAEMIA
     Dosage: 1 ML,QOW
     Route: 058
     Dates: start: 20170502
  2. AMITIZA [Concomitant]
     Active Substance: LUBIPROSTONE
     Indication: CONSTIPATION
     Dosage: 8 UG,BID
     Route: 048
     Dates: start: 201703
  3. LEVOTHYROXINE. [Concomitant]
     Active Substance: LEVOTHYROXINE
     Indication: HYPOTHYROIDISM
     Dosage: 88 UG,QD
     Route: 048
     Dates: start: 2013
  4. ASPIRINE [Concomitant]
     Active Substance: ASPIRIN
     Indication: CARDIOVASCULAR EVENT PROPHYLAXIS
     Dosage: 81 MG,QD
     Route: 048
     Dates: start: 2016
  5. BLINDED NO STUDY DRUG GIVEN [Suspect]
     Active Substance: INVESTIGATIONAL PRODUCT
     Indication: HYPERCHOLESTEROLAEMIA
     Dosage: 1 ML,QOW
     Route: 058
     Dates: start: 20170502
  6. BLINDED PLACEBO [Suspect]
     Active Substance: INVESTIGATIONAL PRODUCT
     Indication: HYPERCHOLESTEROLAEMIA
     Dosage: 1 ML,QOW
     Route: 058
     Dates: start: 20170502
  7. ATORVASTATIN [Suspect]
     Active Substance: ATORVASTATIN
     Indication: HYPERCHOLESTEROLAEMIA
     Dosage: 80 MG,QD
     Route: 048
     Dates: start: 2016
  8. LEVEMIR [Concomitant]
     Active Substance: INSULIN DETEMIR
     Indication: TYPE 2 DIABETES MELLITUS
     Dosage: 30 IU,QD
     Route: 058
     Dates: start: 2014
  9. MULTIVITAMIN 6 [Concomitant]
     Indication: SUPPLEMENTATION THERAPY
     Dosage: 1 DF,QD
     Route: 048
     Dates: start: 2016
  10. BLINDED ALIROCUMAB [Suspect]
     Active Substance: ALIROCUMAB
     Indication: HYPERCHOLESTEROLAEMIA
     Dosage: 1 ML,QOW
     Route: 058
     Dates: start: 20170502
  11. BLINDED RED YEAST RICE [Suspect]
     Active Substance: DIETARY SUPPLEMENT
     Indication: HYPERCHOLESTEROLAEMIA
     Dosage: 1 ML,QOW
     Route: 058
     Dates: start: 20170502
  12. FISH OIL [Suspect]
     Active Substance: FISH OIL
     Indication: HYPERCHOLESTEROLAEMIA
     Dosage: 600 MG,QD
     Route: 048
     Dates: start: 2016
  13. BLINDED ALIROCUMAB [Suspect]
     Active Substance: ALIROCUMAB
     Indication: HYPERCHOLESTEROLAEMIA
     Dosage: 1 ML,QOW
     Route: 058
     Dates: start: 20170502
  14. FUROSEMIDE. [Concomitant]
     Active Substance: FUROSEMIDE
     Indication: OEDEMA
     Dosage: 20 MG,QD
     Route: 048
     Dates: start: 201703
  15. HUMALOG [Concomitant]
     Active Substance: INSULIN LISPRO
     Indication: TYPE 2 DIABETES MELLITUS
     Dosage: 8 IU,TID
     Route: 058
     Dates: start: 2014
  16. ONGLYZA [Concomitant]
     Active Substance: SAXAGLIPTIN HYDROCHLORIDE
     Indication: TYPE 2 DIABETES MELLITUS
     Dosage: 5 MG,QD
     Route: 048
     Dates: start: 201703
  17. NITROGLYCERIN. [Concomitant]
     Active Substance: NITROGLYCERIN
     Indication: ANGINA UNSTABLE
     Dosage: .4 MG,PRN
     Route: 048
     Dates: start: 201601
  18. BLINDED FENOFIBRIC ACID [Suspect]
     Active Substance: FENOFIBRIC ACID
     Indication: HYPERCHOLESTEROLAEMIA
     Dosage: 1 ML,QOW
     Route: 058
     Dates: start: 20170502
  19. BIOTIN [Concomitant]
     Active Substance: BIOTIN
     Indication: SUPPLEMENTATION THERAPY
     Dosage: 1 DF,QD
     Route: 048
     Dates: start: 2016
  20. BRILINTA [Concomitant]
     Active Substance: TICAGRELOR
     Indication: MYOCARDIAL INFARCTION
     Dosage: 90 MG,QD
     Route: 048
     Dates: start: 2016, end: 201712
  21. FLUTICASONE. [Concomitant]
     Active Substance: FLUTICASONE
     Indication: RHINITIS ALLERGIC
     Dosage: 50 UG,PRN
     Route: 045
     Dates: start: 2016

REACTIONS (1)
  - Myocardial infarction [Recovered/Resolved]

NARRATIVE: CASE EVENT DATE: 20171204
